FAERS Safety Report 22143378 (Version 1)
Quarter: 2023Q1

REPORT INFORMATION
  Report Type: Spontaneous
  Country: US (occurrence: None)
  Receive Date: 20230327
  Receipt Date: 20230327
  Transmission Date: 20230418
  Serious: Yes (Death, Other)
  Sender: FDA-Public Use
  Company Number: 2023A070935

PATIENT
  Age: 28859 Day
  Sex: Male

DRUGS (5)
  1. SEROQUEL [Suspect]
     Active Substance: QUETIAPINE FUMARATE
     Route: 048
     Dates: start: 201608
  2. ZOOLOFT [Concomitant]
  3. CELESTE [Concomitant]
  4. SINEMET [Concomitant]
     Active Substance: CARBIDOPA\LEVODOPA
  5. ATIVAN [Concomitant]
     Active Substance: LORAZEPAM

REACTIONS (4)
  - Death [Fatal]
  - Agitation [Unknown]
  - Hallucination [Unknown]
  - Anxiety [Unknown]

NARRATIVE: CASE EVENT DATE: 20201226
